FAERS Safety Report 5564800-7 (Version None)
Quarter: 2007Q4

REPORT INFORMATION
  Report Type: 
  Country: None (occurrence: None)
  Receive Date: 20071218
  Receipt Date: 20071211
  Transmission Date: 20080405
  Serious: Yes (Other)
  Sender: FDA-Public Use
  Company Number: FR-JNJFOC-20071102295

PATIENT
  Age: 50 Year
  Sex: Female

DRUGS (2)
  1. DURAGESIC-100 [Suspect]
     Indication: CANCER PAIN
     Dosage: TREATMENT RECEIVED FOR SEVERAL YEARS
     Route: 062
  2. ACTISKENAN [Concomitant]
     Route: 065

REACTIONS (6)
  - ANXIETY [None]
  - APPLICATION SITE BURN [None]
  - APPLICATION SITE IRRITATION [None]
  - PAIN [None]
  - PHARMACEUTICAL PRODUCT COMPLAINT [None]
  - WOUND HAEMORRHAGE [None]
